FAERS Safety Report 15289572 (Version 3)
Quarter: 2018Q3

REPORT INFORMATION
  Report Type: Report from Study
  Country: US (occurrence: US)
  Receive Date: 20180817
  Receipt Date: 20180905
  Transmission Date: 20181010
  Serious: Yes (Death)
  Sender: FDA-Public Use
  Company Number: US-PFIZER INC-2018331606

PATIENT
  Age: 26 Year
  Sex: Female

DRUGS (6)
  1. CLONAZEPAM. [Suspect]
     Active Substance: CLONAZEPAM
     Dosage: UNK
  2. FLUOXETINE [Suspect]
     Active Substance: FLUOXETINE HYDROCHLORIDE
     Dosage: UNK
  3. TRAZODONE [Suspect]
     Active Substance: TRAZODONE HYDROCHLORIDE
     Dosage: UNK
  4. DOXEPIN HCL [Suspect]
     Active Substance: DOXEPIN HYDROCHLORIDE
     Dosage: UNK
  5. QUETIAPINE. [Suspect]
     Active Substance: QUETIAPINE
     Dosage: UNK
  6. BUPROPION. [Suspect]
     Active Substance: BUPROPION
     Dosage: UNK

REACTIONS (8)
  - Arrhythmia [Fatal]
  - Bradycardia [Fatal]
  - Metabolic acidosis [Fatal]
  - Toxicity to various agents [Fatal]
  - Hypotension [Fatal]
  - Coma [Fatal]
  - Depressed level of consciousness [Fatal]
  - Respiratory depression [Fatal]
